FAERS Safety Report 24316137 (Version 1)
Quarter: 2024Q3

REPORT INFORMATION
  Report Type: Spontaneous
  Country: US (occurrence: US)
  Receive Date: 20240913
  Receipt Date: 20240913
  Transmission Date: 20241016
  Serious: Yes (Other)
  Sender: BAYER
  Company Number: US-BAYER-2024A130126

PATIENT
  Age: 60 Year
  Sex: Female

DRUGS (3)
  1. MIRALAX [Suspect]
     Active Substance: POLYETHYLENE GLYCOL 3350
     Indication: Product used for unknown indication
  2. LYTGOBI [Concomitant]
     Active Substance: FUTIBATINIB
     Indication: Cholangiocarcinoma
     Dosage: 4 MG, QD
     Route: 048
     Dates: start: 20240606
  3. COLACE [Concomitant]
     Active Substance: DOCUSATE SODIUM

REACTIONS (4)
  - Ascites [None]
  - Diarrhoea [Not Recovered/Not Resolved]
  - Fatigue [None]
  - Nausea [None]
